FAERS Safety Report 11119644 (Version 3)
Quarter: 2015Q2

REPORT INFORMATION
  Report Type: Report from Study
  Country: EC (occurrence: EC)
  Receive Date: 20150518
  Receipt Date: 20150610
  Transmission Date: 20150821
  Serious: Yes (Hospitalization)
  Sender: FDA-Public Use
  Company Number: PHHY2015EC058782

PATIENT
  Age: 9 Year
  Sex: Female

DRUGS (2)
  1. EXJADE [Suspect]
     Active Substance: DEFERASIROX
     Dosage: 500 MG, QD
     Route: 048
     Dates: end: 20150430
  2. EXJADE [Suspect]
     Active Substance: DEFERASIROX
     Indication: SICKLE CELL ANAEMIA
     Dosage: 250 MG, QD
     Route: 048
     Dates: start: 20120601

REACTIONS (5)
  - Pain in extremity [Unknown]
  - Immune system disorder [Recovered/Resolved]
  - Asthenia [Unknown]
  - Haematocrit decreased [Recovered/Resolved]
  - Blood iron increased [Recovered/Resolved]

NARRATIVE: CASE EVENT DATE: 20150421
